FAERS Safety Report 23472085 (Version 1)
Quarter: 2024Q1

REPORT INFORMATION
  Report Type: Report from Study
  Country: US (occurrence: US)
  Receive Date: 20240202
  Receipt Date: 20240202
  Transmission Date: 20240410
  Serious: Yes (Hospitalization)
  Sender: FDA-Public Use
  Company Number: US-BAYER-2024A014959

PATIENT
  Age: 61 Year
  Sex: Male

DRUGS (1)
  1. STIVARGA [Suspect]
     Active Substance: REGORAFENIB
     Dosage: 80 MG, QD
     Dates: start: 202311, end: 202312

REACTIONS (4)
  - Dehydration [None]
  - Decreased appetite [Recovered/Resolved]
  - Abdominal pain upper [None]
  - Off label use [None]

NARRATIVE: CASE EVENT DATE: 20231101
